FAERS Safety Report 11309696 (Version 1)
Quarter: 2015Q3

REPORT INFORMATION
  Report Type: Spontaneous
  Country: IN (occurrence: IN)
  Receive Date: 20150724
  Receipt Date: 20150724
  Transmission Date: 20151125
  Serious: Yes (Other)
  Sender: FDA-Public Use
  Company Number: IN-FRESENIUS KABI-FK201503583

PATIENT
  Age: 29 Year
  Sex: Male

DRUGS (3)
  1. BUPIVACAINE (MANUFACTURER UNKNOWN) (BUPIVACAINE) (BUPIVACAINE) [Suspect]
     Active Substance: BUPIVACAINE
     Indication: SPINAL ANAESTHESIA
     Route: 050
  2. LIGNOCAINE [Concomitant]
     Active Substance: LIDOCAINE HYDROCHLORIDE
     Indication: SPINAL ANAESTHESIA
     Route: 050
  3. DICLOFENAC [Concomitant]
     Active Substance: DICLOFENAC
     Indication: HEADACHE
     Route: 042

REACTIONS (1)
  - Meningitis aseptic [Recovered/Resolved]
